FAERS Safety Report 7364884-X (Version None)
Quarter: 2011Q1

REPORT INFORMATION
  Report Type: 
  Country: None (occurrence: None)
  Receive Date: 20110316
  Receipt Date: 20110316
  Transmission Date: 20110831
  Serious: Yes (Death, Life-Threatening, Hospitalization, Other)
  Sender: FDA-Public Use
  Company Number: None

PATIENT
  Age: 83 Year
  Sex: Male
  Weight: 54.1 kg

DRUGS (6)
  1. SULINDAC [Concomitant]
  2. GLYBURIDE [Concomitant]
  3. METFORMIN HCL [Concomitant]
  4. LISINOPRIL [Concomitant]
  5. BYETTA [Suspect]
     Indication: DIABETES MELLITUS
     Dosage: 5MCG TWICE A DAY SUBCUTANEOUS
     Route: 058
     Dates: start: 20101016, end: 20101116
  6. FURAZOSIN [Concomitant]

REACTIONS (12)
  - NAUSEA [None]
  - SHOCK [None]
  - VOMITING [None]
  - METABOLIC ACIDOSIS [None]
  - HYPOCALCAEMIA [None]
  - ABDOMINAL DISTENSION [None]
  - RENAL FAILURE ACUTE [None]
  - DEPRESSION [None]
  - ABDOMINAL PAIN [None]
  - DYSPHAGIA [None]
  - DIABETES MELLITUS [None]
  - RESPIRATORY DISTRESS [None]
